FAERS Safety Report 5404016-8 (Version None)
Quarter: 2007Q3

REPORT INFORMATION
  Report Type: 
  Country: None (occurrence: None)
  Receive Date: 20070802
  Receipt Date: 20070724
  Transmission Date: 20080115
  Serious: Yes (Death, Hospitalization, Other)
  Sender: FDA-Public Use
  Company Number: FR-AMGEN-US232024

PATIENT
  Sex: Female

DRUGS (10)
  1. ENBREL [Suspect]
     Indication: RHEUMATOID ARTHRITIS
     Route: 058
     Dates: start: 20060929, end: 20070428
  2. PROZAC [Interacting]
     Indication: DEPRESSION
     Dosage: UNKNOWN
     Route: 048
     Dates: start: 20060601, end: 20061001
  3. PROZAC [Interacting]
     Dosage: UNKNOWN
     Route: 048
     Dates: start: 20070402, end: 20070417
  4. PROZAC [Interacting]
     Route: 048
     Dates: start: 20070418
  5. LEVOTHYROXINE SODIUM [Concomitant]
     Dosage: UNKNOWN
     Route: 048
  6. NEXIUM [Concomitant]
     Indication: BACK PAIN
     Dosage: UNKNOWN; IN CASE OF LUMBAR PAIN
  7. CORTANCYL [Concomitant]
     Dosage: UNKNOWN; WEAK DOSE AS CORTANCYL WITHDRAWAL WAS PLANNED
     Route: 048
  8. TRAMADOL HCL [Concomitant]
     Indication: PAIN
     Dosage: UNKNOWN; IN CASE OF PAIN
  9. KETOPROFEN [Concomitant]
     Indication: BACK PAIN
     Dosage: UNKNOWN; IN CASE OF LUMBAR PAIN
     Route: 048
  10. NOVATREX [Concomitant]
     Indication: RHEUMATOID ARTHRITIS
     Dosage: 15 MG TOTAL WEEKLY
     Route: 048
     Dates: end: 20070428

REACTIONS (29)
  - ACUTE RESPIRATORY DISTRESS SYNDROME [None]
  - ARRHYTHMIA [None]
  - BRAIN STEM ISCHAEMIA [None]
  - CARDIO-RESPIRATORY ARREST [None]
  - CEREBRAL ISCHAEMIA [None]
  - CIRCULATORY COLLAPSE [None]
  - COMPLETED SUICIDE [None]
  - CONDITION AGGRAVATED [None]
  - CONVULSION [None]
  - DEPRESSION [None]
  - DISSEMINATED INTRAVASCULAR COAGULATION [None]
  - DRUG INTERACTION POTENTIATION [None]
  - GLASGOW COMA SCALE ABNORMAL [None]
  - HAEMOTHORAX [None]
  - HEAD INJURY [None]
  - HYPERKALAEMIA [None]
  - LOCALISED INTRAABDOMINAL FLUID COLLECTION [None]
  - LOSS OF CONSCIOUSNESS [None]
  - METABOLIC ACIDOSIS [None]
  - MULTI-ORGAN FAILURE [None]
  - MYOCARDIAL INFARCTION [None]
  - PNEUMONIA [None]
  - POISONING [None]
  - ROAD TRAFFIC ACCIDENT [None]
  - SOMNOLENCE [None]
  - SUBARACHNOID HAEMORRHAGE [None]
  - SUICIDAL IDEATION [None]
  - SUICIDE ATTEMPT [None]
  - TRAUMATIC HAEMORRHAGE [None]
